FAERS Safety Report 6955562-7 (Version None)
Quarter: 2010Q3

REPORT INFORMATION
  Report Type: 
  Country: None (occurrence: None)
  Receive Date: 20100826
  Receipt Date: 20100826
  Transmission Date: 20110219
  Serious: Yes (Other)
  Sender: FDA-Public Use
  Company Number: None

PATIENT
  Age: 82 Year
  Sex: Female
  Weight: 54.4316 kg

DRUGS (3)
  1. ZYMAR [Suspect]
     Indication: MACULAR DEGENERATION
     Dosage: 1 DROP IN THE EYE 4 X A DAY DAY BEFORE SHOT OTIC
     Route: 001
     Dates: start: 20091220, end: 20100510
  2. ZYMAR [Suspect]
     Dosage: 1 DAOP IN THE DYD 4 X A DAY 4 DAYS AFTER SHOT OTIC
     Route: 001
  3. PREVIOUSLY PROVIDED [Concomitant]

REACTIONS (6)
  - ALOPECIA [None]
  - CYSTITIS [None]
  - DYSGEUSIA [None]
  - RASH [None]
  - VASODILATATION [None]
  - WEIGHT DECREASED [None]
